FAERS Safety Report 8037595-5 (Version None)
Quarter: 2012Q1

REPORT INFORMATION
  Report Type: 
  Country: None (occurrence: None)
  Receive Date: 20120111
  Receipt Date: 20111230
  Transmission Date: 20120608
  Serious: Yes (Hospitalization, Disabling)
  Sender: FDA-Public Use
  Company Number: DE-SANOFI-AVENTIS-2011SA084653

PATIENT
  Age: 56 Year
  Sex: Male
  Weight: 55.1 kg

DRUGS (4)
  1. THERAPEUTIC RADIOPHARMACEUTICALS [Suspect]
     Indication: RECTAL CANCER
     Dosage: CUMULATIVE DOSE: 45GY
     Route: 065
     Dates: start: 20110614, end: 20110715
  2. HEPARIN SODIUM [Concomitant]
     Dosage: 7500 IE
     Route: 058
  3. CAPECITABINE [Suspect]
     Indication: RECTAL CANCER
     Dosage: LAST DOSE PRIOR TO SAE ON 15 JUL 2011: 825 MG/M2, 2 IN 1 DAY
     Route: 048
     Dates: start: 20110614
  4. OXALIPLATIN [Suspect]
     Indication: RECTAL CANCER
     Route: 065

REACTIONS (2)
  - GASTROENTERITIS RADIATION [None]
  - GENITAL INFECTION FUNGAL [None]
